FAERS Safety Report 13578657 (Version 2)
Quarter: 2020Q1

REPORT INFORMATION
  Report Type: Spontaneous
  Country: US (occurrence: US)
  Receive Date: 20170524
  Receipt Date: 20200312
  Transmission Date: 20200409
  Serious: Yes (Death, Hospitalization, Other)
  Sender: FDA-Public Use
  Company Number: US-009507513-1705USA011736

PATIENT
  Sex: Female
  Weight: 115.65 kg

DRUGS (21)
  1. MAXZIDE [Concomitant]
     Active Substance: HYDROCHLOROTHIAZIDE\TRIAMTERENE
     Indication: OEDEMA
     Dosage: 1 TABLET, ONCE A DYA
     Dates: start: 20100715, end: 20140725
  2. LASIX [Concomitant]
     Active Substance: FUROSEMIDE
     Indication: OEDEMA
     Dosage: 1 TABLET, ONCE A DAY
     Dates: start: 20100715, end: 20130728
  3. VITAMINS (UNSPECIFIED) [Concomitant]
     Active Substance: VITAMINS
     Indication: ROUTINE HEALTH MAINTENANCE
     Dosage: 1 TABLET, ONCE A DAY
     Dates: start: 20100715, end: 20150717
  4. DARVOCET-N 100 [Concomitant]
     Active Substance: ACETAMINOPHEN\PROPOXYPHENE NAPSYLATE
     Indication: PAIN
     Dosage: 1 TABLET AS NEEDED, EVERY 4 HOURS
     Dates: start: 20100715
  5. JANUMET XR [Suspect]
     Active Substance: METFORMIN HYDROCHLORIDE\SITAGLIPTIN PHOSPHATE
     Dosage: 50 (+) 1000 MG , TWICE DAILY
     Route: 048
     Dates: start: 20100715, end: 201507
  6. LYSINE [Concomitant]
     Active Substance: LYSINE
     Indication: ROUTINE HEALTH MAINTENANCE
     Dosage: 2 CAPSULE, ONCE A DAY
     Dates: start: 20100715, end: 20150717
  7. ASPIRIN. [Concomitant]
     Active Substance: ASPIRIN
     Indication: PAIN
     Dosage: 1 TABLET, ONCE A DAY
     Dates: start: 20100715, end: 20150717
  8. POTASSIUM CHLORIDE. [Concomitant]
     Active Substance: POTASSIUM CHLORIDE
     Indication: ROUTINE HEALTH MAINTENANCE
     Dosage: 1 TABLET, TWICE A DAY
     Dates: start: 20100715, end: 20150611
  9. NEURONTIN [Concomitant]
     Active Substance: GABAPENTIN
     Indication: SEIZURE
     Dosage: 1 CAPSULE, TWICE A DAY
     Dates: start: 20100715, end: 20150717
  10. HUMALOG [Concomitant]
     Active Substance: INSULIN LISPRO
     Indication: DIABETES MELLITUS
     Dosage: 40 UNITS AT SUPPER
     Dates: start: 20100715, end: 20150717
  11. AMARYL [Concomitant]
     Active Substance: GLIMEPIRIDE
     Indication: DIABETES MELLITUS
     Dosage: 1 TABLET WITH BREAKFAST OR THE FIRST MAIN MEAL OF THE DAY, 2X DAILY
     Dates: start: 20100715, end: 20130314
  12. JANUMET [Suspect]
     Active Substance: METFORMIN HYDROCHLORIDE\SITAGLIPTIN PHOSPHATE
     Dosage: 50 (+) 1000 MG, TWICE DAILY
     Route: 048
     Dates: start: 20100715, end: 201507
  13. BYETTA [Suspect]
     Active Substance: EXENATIDE
     Dosage: AS PRESCRIBED, UNK
     Dates: start: 20061021
  14. VICTOZA [Suspect]
     Active Substance: LIRAGLUTIDE
     Dosage: 1.8 MILLIGRAM, ONCE DAILY
     Dates: start: 20110121, end: 201402
  15. OMEGA-3 MARINE TRIGLYCERIDES [Concomitant]
     Active Substance: FISH OIL
     Indication: ROUTINE HEALTH MAINTENANCE
     Dosage: 2 CAPSULE, ONCE A DAY
     Dates: start: 20100715, end: 20150717
  16. LOTREL [Concomitant]
     Active Substance: AMLODIPINE BESYLATE\BENAZEPRIL HYDROCHLORIDE
     Indication: HYPERTENSION
     Dosage: 1 CAPSULE, ONCE DAILY
     Dates: start: 20100715, end: 20150611
  17. POTASSIUM CHLORIDE. [Concomitant]
     Active Substance: POTASSIUM CHLORIDE
     Dosage: 1 TABLET, ONCE A DAY
  18. LIPITOR [Concomitant]
     Active Substance: ATORVASTATIN CALCIUM
     Indication: BLOOD CHOLESTEROL INCREASED
     Dosage: 1 TABLET, ONCE A DAY
     Dates: start: 20100715, end: 20150318
  19. VICTOZA [Suspect]
     Active Substance: LIRAGLUTIDE
     Dosage: UNK
     Route: 065
     Dates: start: 201308, end: 201401
  20. SINGULAIR [Concomitant]
     Active Substance: MONTELUKAST SODIUM
     Indication: HYPERSENSITIVITY
     Dosage: 1 TABLET IN THE EVNEING, ONCE A DAY
     Route: 048
     Dates: start: 20100715, end: 20150717
  21. CINNAMON. [Concomitant]
     Active Substance: CINNAMON
     Indication: ROUTINE HEALTH MAINTENANCE
     Dosage: UNK
     Dates: start: 20100715, end: 20101115

REACTIONS (26)
  - Metastases to liver [Unknown]
  - Infection [Unknown]
  - Nausea [Unknown]
  - Inappropriate schedule of product administration [Unknown]
  - Blood glucose fluctuation [Unknown]
  - Hypophagia [Unknown]
  - Inflammation [Unknown]
  - Jaundice [Unknown]
  - Endometriosis [Unknown]
  - Hypercholesterolaemia [Unknown]
  - Sinus disorder [Unknown]
  - Abnormal loss of weight [Unknown]
  - Pain in extremity [Unknown]
  - Pancreatic carcinoma [Fatal]
  - Depressed mood [Unknown]
  - Nausea [Unknown]
  - Oxygen saturation decreased [Unknown]
  - Oxygen saturation decreased [Unknown]
  - Anxiety [Unknown]
  - Vomiting [Unknown]
  - Overweight [Unknown]
  - Bronchospasm [Unknown]
  - Back pain [Unknown]
  - Blood pressure fluctuation [Unknown]
  - Stress [Unknown]
  - Gastrooesophageal reflux disease [Unknown]

NARRATIVE: CASE EVENT DATE: 20100715
